FAERS Safety Report 12548001 (Version 1)
Quarter: 2016Q3

REPORT INFORMATION
  Report Type: Spontaneous
  Country: US (occurrence: None)
  Receive Date: 20160711
  Receipt Date: 20160711
  Transmission Date: 20161109
  Serious: Yes (Life-Threatening, Hospitalization)
  Sender: FDA-Public Use
  Company Number: None

PATIENT
  Age: 9 Year
  Sex: Female
  Weight: 31.3 kg

DRUGS (3)
  1. KEPPRA [Concomitant]
     Active Substance: LEVETIRACETAM
  2. LAMOTRIGINE, 25 MG GLAXOSMITHKLINE [Suspect]
     Active Substance: LAMOTRIGINE
     Indication: SEIZURE
     Route: 048
     Dates: start: 20160616, end: 20160703
  3. ETHOSUXIMIDE. [Concomitant]
     Active Substance: ETHOSUXIMIDE

REACTIONS (5)
  - Stomatitis [None]
  - Full blood count decreased [None]
  - Bone marrow toxicity [None]
  - Platelet count decreased [None]
  - Rash generalised [None]

NARRATIVE: CASE EVENT DATE: 20160706
